FAERS Safety Report 10178338 (Version 1)
Quarter: 2014Q2

REPORT INFORMATION
  Report Type: Spontaneous
  Country: US (occurrence: US)
  Receive Date: 20140519
  Receipt Date: 20140519
  Transmission Date: 20141212
  Serious: Yes (Other)
  Sender: FDA-Public Use
  Company Number: US-AMGEN-USASP2014036057

PATIENT
  Age: 18 Year
  Sex: Male
  Weight: 82.54 kg

DRUGS (4)
  1. ENBREL [Suspect]
     Indication: PRODUCT USED FOR UNKNOWN INDICATION
     Dosage: 25 MG, 2 TIMES/WK
     Route: 058
  2. SERTRALINE [Concomitant]
     Dosage: 100 MG, UNK
  3. NEXIUM                             /01479302/ [Concomitant]
     Dosage: 20 MG, UNK
  4. VITAMIN D                          /00107901/ [Concomitant]
     Dosage: 1000 UNIT, UNK

REACTIONS (1)
  - Crohn^s disease [Unknown]
